FAERS Safety Report 8314897-6 (Version None)
Quarter: 2012Q2

REPORT INFORMATION
  Report Type: 
  Country: None (occurrence: None)
  Receive Date: 20120426
  Receipt Date: 20120418
  Transmission Date: 20120825
  Serious: No
  Sender: FDA-Public Use
  Company Number: US-JNJFOC-20120408482

PATIENT
  Sex: Male
  Weight: 90.72 kg

DRUGS (3)
  1. PREDNISONE TAB [Concomitant]
     Route: 065
     Dates: start: 20120201
  2. REMICADE [Suspect]
     Indication: RHEUMATOID ARTHRITIS
     Route: 042
     Dates: start: 20120402, end: 20120401
  3. METHOTREXATE [Concomitant]
     Route: 065
     Dates: start: 20120201

REACTIONS (1)
  - HERPES ZOSTER [None]
